FAERS Safety Report 8961843 (Version 1)
Quarter: 2012Q4

REPORT INFORMATION
  Report Type: 
  Country: US (occurrence: US)
  Receive Date: 20121212
  Receipt Date: 20121212
  Transmission Date: 20130627
  Serious: No
  Sender: FDA-Public Use
  Company Number: US-VERTEX PHARMACEUTICALS INC.-2012-025658

PATIENT
  Sex: Female

DRUGS (7)
  1. VX-950 (TELAPREVIR) [Suspect]
     Indication: HEPATITIS C
     Route: 048
  2. RIBAVIRIN [Concomitant]
  3. PEGASYS [Concomitant]
  4. PRILOSEC                           /00661201/ [Concomitant]
  5. PAROXETINE [Concomitant]
  6. LEVOTHYROXINE [Concomitant]
  7. FELODIPINE [Concomitant]

REACTIONS (1)
  - Drug ineffective [Unknown]
